FAERS Safety Report 8534759 (Version 8)
Quarter: 2015Q3

REPORT INFORMATION
  Report Type: Spontaneous
  Country: US (occurrence: US)
  Receive Date: 20120427
  Receipt Date: 20150807
  Transmission Date: 20151125
  Serious: Yes (Other)
  Sender: FDA-Public Use
  Company Number: US-ASTRAZENECA-2011SE54529

PATIENT
  Age: 74 Year
  Sex: Female
  Weight: 69.9 kg

DRUGS (7)
  1. CALCIUM MAGNESIUM AND ZINC [Concomitant]
     Indication: IMMUNE SYSTEM DISORDER
     Dosage: DAILY
     Route: 065
     Dates: start: 2008
  2. B12 SUBLINGUAL [Concomitant]
     Indication: ASTHENIA
     Route: 060
     Dates: start: 2011
  3. CRESTOR [Suspect]
     Active Substance: ROSUVASTATIN CALCIUM
     Indication: BLOOD CHOLESTEROL ABNORMAL
     Route: 048
     Dates: start: 2004, end: 2013
  4. VITAMIN C [Concomitant]
     Active Substance: ASCORBIC ACID
     Route: 065
     Dates: start: 2004
  5. PLAVIX [Concomitant]
     Active Substance: CLOPIDOGREL BISULFATE
     Indication: BLOOD DISORDER
     Route: 065
     Dates: start: 2004
  6. CRESTOR [Suspect]
     Active Substance: ROSUVASTATIN CALCIUM
     Indication: BLOOD CHOLESTEROL ABNORMAL
     Route: 048
  7. MORPHINE [Suspect]
     Active Substance: MORPHINE
     Dosage: NON AZ PRODUCT
     Route: 065

REACTIONS (16)
  - Lower limb fracture [Recovered/Resolved]
  - Blood triglycerides increased [Unknown]
  - Carotid artery stenosis [Unknown]
  - Accident [Unknown]
  - Concussion [Unknown]
  - Condition aggravated [Unknown]
  - Fear [Unknown]
  - Arterial injury [Unknown]
  - Asthenia [Unknown]
  - Drug dose omission [Unknown]
  - Blood cholesterol abnormal [Unknown]
  - Head injury [Unknown]
  - Anxiety [Unknown]
  - Low density lipoprotein increased [Unknown]
  - Peripheral arterial occlusive disease [Unknown]
  - Drug hypersensitivity [Unknown]

NARRATIVE: CASE EVENT DATE: 2004
